FAERS Safety Report 10261410 (Version 1)
Quarter: 2014Q2

REPORT INFORMATION
  Report Type: Other
  Country: GB (occurrence: GB)
  Receive Date: 20140626
  Receipt Date: 20140626
  Transmission Date: 20141212
  Serious: No
  Sender: FDA-Public Use
  Company Number: GB-LUPIN PHARMACEUTICALS INC.-2014-01128

PATIENT
  Age: 51 Year
  Sex: Female

DRUGS (2)
  1. MINOCYCLINE [Suspect]
     Indication: ACNE
     Route: 065
  2. MINOCYCLINE [Suspect]
     Indication: ROSACEA

REACTIONS (4)
  - Tooth discolouration [Unknown]
  - Oral mucosal discolouration [Unknown]
  - Skin discolouration [Unknown]
  - Scleral discolouration [Unknown]
